FAERS Safety Report 4494145-8 (Version None)
Quarter: 2004Q4

REPORT INFORMATION
  Report Type: 
  Country: None (occurrence: None)
  Receive Date: 20041102
  Receipt Date: 20041020
  Transmission Date: 20050328
  Serious: Yes (Hospitalization)
  Sender: FDA-Public Use
  Company Number: 2004080726

PATIENT
  Age: 68 Year
  Sex: Female

DRUGS (5)
  1. CARDENALIN (DOXAZOSIN) [Suspect]
     Indication: BLOOD PRESSURE
     Dosage: 2 MG (1 D) ,ORAL
     Route: 048
     Dates: start: 20041002
  2. QUINAPRIL HCL [Suspect]
     Indication: BLOOD PRESSURE
     Dosage: 20 MG (1 D), ORAL
     Route: 048
     Dates: start: 20041002, end: 20041018
  3. VANCOMYCIN [Suspect]
     Indication: IMPLANT SITE INFECTION
     Dosage: 1 GRAM (1 D), INTRAVENOUS
     Route: 042
     Dates: start: 20041006, end: 20041015
  4. MINOCYCLINE HYDROCHLORIDE [Suspect]
     Indication: IMPLANT SITE INFECTION
     Dosage: 200 MG (1 D), INTRAVENOUS
     Route: 042
     Dates: start: 20041006, end: 20041015
  5. GALENIC/PANIPENEM/BETAMIPRON/ (BETAMIPRON, PANIPENEM) [Suspect]
     Indication: IMPLANT SITE INFECTION
     Dosage: 1 GRAM (1 D), INTRAVENOUS
     Route: 042
     Dates: start: 20041006, end: 20041018

REACTIONS (1)
  - PANCYTOPENIA [None]
